FAERS Safety Report 15418286 (Version 1)
Quarter: 2018Q3

REPORT INFORMATION
  Report Type: Spontaneous
  Country: None (occurrence: None)
  Receive Date: 20180924
  Receipt Date: 20180924
  Transmission Date: 20181010
  Serious: Yes (Other)
  Sender: FDA-Public Use
  Company Number: TELIGENT, INC-IGIL20180528

PATIENT
  Age: 34 Year
  Sex: Female

DRUGS (1)
  1. CEFOTETAN DISODIUM [Suspect]
     Active Substance: CEFOTETAN DISODIUM
     Indication: SKIN TEST
     Dosage: 0.04?ML INJECTION OF 1:100 DILUTED SOLUTION
     Route: 023

REACTIONS (14)
  - Anaphylactic reaction [Recovered/Resolved]
  - Anaphylactic shock [Recovered/Resolved]
  - Dyspnoea [Recovered/Resolved]
  - Cough [Recovered/Resolved]
  - Rash pruritic [Recovered/Resolved]
  - Burning sensation [Recovered/Resolved]
  - Chest discomfort [Recovered/Resolved]
  - Pruritus [Recovered/Resolved]
  - Urticaria [Recovered/Resolved]
  - Abdominal pain [Recovered/Resolved]
  - Hypotension [Recovered/Resolved]
  - Hypoxia [Recovered/Resolved]
  - Vomiting [Recovered/Resolved]
  - Maternal exposure timing unspecified [None]
